FAERS Safety Report 17452533 (Version 2)
Quarter: 2020Q1

REPORT INFORMATION
  Report Type: Spontaneous
  Country: NL (occurrence: NL)
  Receive Date: 20200224
  Receipt Date: 20200313
  Transmission Date: 20200409
  Serious: Yes (Other)
  Sender: FDA-Public Use
  Company Number: NL-009507513-2002NLD006864

PATIENT
  Age: 82 Year
  Sex: Male

DRUGS (3)
  1. SINEMET CR [Suspect]
     Active Substance: CARBIDOPA\LEVODOPA
     Indication: PARKINSON^S DISEASE
     Dosage: UNK
     Route: 048
  2. SINEMET [Suspect]
     Active Substance: CARBIDOPA\LEVODOPA
     Indication: PARKINSON^S DISEASE
     Dosage: UNK
     Route: 048
     Dates: start: 201906
  3. CARBIDOPA (+) LEVODOPA [Suspect]
     Active Substance: CARBIDOPA\LEVODOPA
     Indication: PARKINSON^S DISEASE
     Dosage: 200 MILLIGRAM/50 MG
     Route: 048

REACTIONS (4)
  - Hallucination [Not Recovered/Not Resolved]
  - Thyroid cancer [Unknown]
  - Product availability issue [Unknown]
  - Fall [Unknown]

NARRATIVE: CASE EVENT DATE: 2017
